FAERS Safety Report 7808412-0 (Version None)
Quarter: 2011Q4

REPORT INFORMATION
  Report Type: 
  Country: None (occurrence: None)
  Receive Date: 20111011
  Receipt Date: 20111011
  Transmission Date: 20120403
  Serious: No
  Sender: FDA-Public Use
  Company Number: None

PATIENT
  Sex: Female
  Weight: 58.9676 kg

DRUGS (1)
  1. NUCYNTA [Suspect]
     Indication: PAIN IN EXTREMITY
     Dosage: 1/2 TAB BID

REACTIONS (4)
  - MUSCLE DISORDER [None]
  - PRESYNCOPE [None]
  - PANIC ATTACK [None]
  - MUSCULAR WEAKNESS [None]
